FAERS Safety Report 18401514 (Version 1)
Quarter: 2020Q4

REPORT INFORMATION
  Report Type: Spontaneous
  Country: US (occurrence: US)
  Receive Date: 20201019
  Receipt Date: 20201019
  Transmission Date: 20210114
  Serious: Yes (Other)
  Sender: FDA-Public Use
  Company Number: US-TEVA-2020-US-1838497

PATIENT

DRUGS (4)
  1. OXYCODONE [Suspect]
     Active Substance: OXYCODONE
     Route: 065
  2. HEROIN [Suspect]
     Active Substance: DIAMORPHINE
     Route: 065
  3. FENTANYL. [Suspect]
     Active Substance: FENTANYL
     Route: 065
  4. TYLENOL [Suspect]
     Active Substance: ACETAMINOPHEN
     Route: 065

REACTIONS (9)
  - Withdrawal syndrome [Unknown]
  - Sleep deficit [Unknown]
  - Dependence [Unknown]
  - Anxiety [Unknown]
  - Depression [Unknown]
  - Paranoia [Unknown]
  - Overdose [Unknown]
  - Suicide attempt [Unknown]
  - Anger [Unknown]
